FAERS Safety Report 5162484-3 (Version None)
Quarter: 2006Q4

REPORT INFORMATION
  Report Type: 
  Country: None (occurrence: None)
  Receive Date: 20061127
  Receipt Date: 20061127
  Transmission Date: 20070319
  Serious: Yes (Other)
  Sender: FDA-Public Use
  Company Number: None

PATIENT
  Age: 57 Year
  Sex: Female

DRUGS (1)
  1. CORDARONE [Suspect]
     Indication: ARRHYTHMIA
     Dosage: 150 MG X 1 IV
     Route: 042
     Dates: start: 20060726

REACTIONS (2)
  - HYPERTENSION [None]
  - OXYGEN SATURATION DECREASED [None]
